FAERS Safety Report 6013313-7 (Version None)
Quarter: 2008Q4

REPORT INFORMATION
  Report Type: 
  Country: None (occurrence: None)
  Receive Date: 20081216
  Receipt Date: 20081009
  Transmission Date: 20090506
  Serious: Yes (Other)
  Sender: FDA-Public Use
  Company Number: US-WYE-H06340008

PATIENT
  Age: 44 Year
  Sex: Female
  Weight: 79.45 kg

DRUGS (5)
  1. EFFEXOR XR [Suspect]
     Indication: ANXIETY
     Dosage: 150 MG 1X PER 1 DAY, ORAL
     Route: 048
     Dates: start: 20030101
  2. ALCOHOL (ETHANOL, ) [Suspect]
     Dosage: 1/5 OF VODKA DAILY
  3. ATIVAN [Concomitant]
  4. IMITREX (SUMATRIPAN SUCCINATE) [Concomitant]
  5. LEVOTHYROXINE SODIUM [Concomitant]

REACTIONS (2)
  - ALCOHOL INTERACTION [None]
  - DRUG INEFFECTIVE [None]
